FAERS Safety Report 10558837 (Version 6)
Quarter: 2015Q3

REPORT INFORMATION
  Report Type: Spontaneous
  Country: US (occurrence: US)
  Receive Date: 20141031
  Receipt Date: 20150720
  Transmission Date: 20151125
  Serious: Yes (Hospitalization)
  Sender: FDA-Public Use
  Company Number: US-ACTELION-A-US2014-107114

PATIENT
  Age: 74 Year
  Sex: Female

DRUGS (4)
  1. ADCIRCA [Suspect]
     Active Substance: TADALAFIL
     Indication: PRODUCT USED FOR UNKNOWN INDICATION
     Dosage: 40 MG, UNK
     Route: 048
     Dates: start: 20131030
  2. WARFARIN [Concomitant]
     Active Substance: WARFARIN
  3. OPSUMIT [Suspect]
     Active Substance: MACITENTAN
     Indication: PULMONARY ARTERIAL HYPERTENSION
     Dosage: 10 MG, QD
     Route: 048
     Dates: start: 20140929
  4. REMODULIN [Suspect]
     Active Substance: TREPROSTINIL
     Indication: PRODUCT USED FOR UNKNOWN INDICATION
     Dosage: 10 NG/KG, PER MIN
     Route: 042
     Dates: start: 20140402

REACTIONS (10)
  - Catheter site pain [Unknown]
  - Chills [Unknown]
  - Staphylococcal infection [Unknown]
  - Catheter site pruritus [Recovering/Resolving]
  - Catheter site erythema [Recovering/Resolving]
  - Device related infection [Unknown]
  - Anaemia [Unknown]
  - Pyrexia [Unknown]
  - Catheter site pustule [Recovering/Resolving]
  - Viral infection [Recovered/Resolved]

NARRATIVE: CASE EVENT DATE: 20141019
